FAERS Safety Report 20382831 (Version 1)
Quarter: 2022Q1

REPORT INFORMATION
  Report Type: Spontaneous
  Country: US (occurrence: US)
  Receive Date: 20220127
  Receipt Date: 20220127
  Transmission Date: 20220423
  Serious: No
  Sender: FDA-Public Use
  Company Number: US-BEH-2022141373

PATIENT
  Age: 80 Year
  Sex: Male

DRUGS (1)
  1. PRIVIGEN [Suspect]
     Active Substance: HUMAN IMMUNOGLOBULIN G
     Dosage: 40 GRAM, QMT
     Route: 042
     Dates: start: 20220124

REACTIONS (6)
  - Urticaria [Recovered/Resolved]
  - Recalled product administered [Recovered/Resolved]
  - Chest discomfort [Recovered/Resolved]
  - Recalled product administered [Recovered/Resolved]
  - Eye swelling [Recovered/Resolved]
  - Recalled product administered [Recovered/Resolved]

NARRATIVE: CASE EVENT DATE: 20220124
